FAERS Safety Report 9207463 (Version 4)
Quarter: 2015Q2

REPORT INFORMATION
  Report Type: Report from Study
  Country: IN (occurrence: IN)
  Receive Date: 20130403
  Receipt Date: 20150609
  Transmission Date: 20150821
  Serious: Yes (Other)
  Sender: FDA-Public Use
  Company Number: IN-ROCHE-1209440

PATIENT

DRUGS (4)
  1. OXALIPLATIN. [Suspect]
     Active Substance: OXALIPLATIN
     Indication: RECTAL ADENOCARCINOMA
     Dosage: ON DAY 1 AND DAY 29
     Route: 042
  2. FLUOROURACIL. [Suspect]
     Active Substance: FLUOROURACIL
     Indication: RECTAL ADENOCARCINOMA
     Dosage: FROM D1 TO 5 AND D29 TO 33
     Route: 042
  3. CAPECITABINE. [Suspect]
     Active Substance: CAPECITABINE
     Indication: RECTAL ADENOCARCINOMA
     Dosage: ON DAY 1-14 AND 25-38
     Route: 048
  4. LEUCOVORIN [Suspect]
     Active Substance: LEUCOVORIN
     Indication: RECTAL ADENOCARCINOMA
     Dosage: FROM D1 TO 5 AND D29 TO 33
     Route: 042

REACTIONS (5)
  - Toxicity to various agents [Unknown]
  - Skin toxicity [Unknown]
  - Diarrhoea [Unknown]
  - Haematotoxicity [Unknown]
  - Palmar-plantar erythrodysaesthesia syndrome [Unknown]
